FAERS Safety Report 6093659-7 (Version None)
Quarter: 2009Q1

REPORT INFORMATION
  Report Type: 
  Country: None (occurrence: None)
  Receive Date: 20090226
  Receipt Date: 20090126
  Transmission Date: 20090719
  Serious: No
  Sender: FDA-Public Use
  Company Number: US-BAYER-200910297BCC

PATIENT
  Age: 83 Year
  Sex: Female
  Weight: 64 kg

DRUGS (12)
  1. ALEVE (CAPLET) [Suspect]
     Indication: ARTHRALGIA
     Dosage: UNIT DOSE: 220 MG
     Dates: start: 20090101
  2. ALEVE (CAPLET) [Suspect]
     Dosage: UNIT DOSE: 220 MG
     Dates: start: 20090101
  3. OYSTER SHELL VITAMIN D [Concomitant]
  4. OYSTER SHELL VITAMIN C [Concomitant]
  5. NATURES MADE B12 [Concomitant]
  6. DETROL LA [Concomitant]
  7. GLUCOSAMINE [Concomitant]
  8. ARIMIDEX [Concomitant]
  9. EQUATE ASPIRIN [Concomitant]
  10. GENERIC FOSAMAX [Concomitant]
  11. AMLODIPINE [Concomitant]
  12. NATURES MADE FISH OIL [Concomitant]

REACTIONS (1)
  - DIZZINESS [None]
